FAERS Safety Report 6274677-2 (Version None)
Quarter: 2009Q3

REPORT INFORMATION
  Report Type: 
  Country: None (occurrence: None)
  Receive Date: 20090721
  Receipt Date: 20070712
  Transmission Date: 20100115
  Serious: Yes (Other)
  Sender: FDA-Public Use
  Company Number: US-ASTRAZENECA-2007UW09594

PATIENT
  Age: 20137 Day
  Sex: Female
  Weight: 106.6 kg

DRUGS (10)
  1. SEROQUEL [Suspect]
     Indication: DEPRESSION
     Dosage: 25 MG TO 200 MG
     Route: 048
     Dates: start: 20001110
  2. SEROQUEL [Suspect]
     Dates: start: 20011101
  3. SERZONE [Concomitant]
     Route: 048
     Dates: start: 20011019
  4. REMERON [Concomitant]
     Dosage: 15 MG TO 30 MG
     Route: 048
     Dates: start: 19971029
  5. TENORMIN [Concomitant]
     Indication: HYPERTENSION
     Dates: start: 19850101
  6. SYNTHROID [Concomitant]
     Indication: HYPOTHYROIDISM
     Dates: start: 19920101
  7. ELAVIL [Concomitant]
     Indication: FIBROMYALGIA
     Dates: start: 19971029
  8. ZYPREXA [Concomitant]
     Route: 048
     Dates: start: 20011019
  9. PAXIL CR [Concomitant]
     Route: 048
     Dates: start: 20020910
  10. EFFEXOR XR [Concomitant]
     Route: 048
     Dates: start: 20020529

REACTIONS (3)
  - HYPERGLYCAEMIA [None]
  - NEUROPATHY PERIPHERAL [None]
  - TYPE 2 DIABETES MELLITUS [None]
